FAERS Safety Report 4391572-4 (Version None)
Quarter: 2004Q3

REPORT INFORMATION
  Report Type: 
  Country: None (occurrence: None)
  Receive Date: 20040701
  Receipt Date: 20040616
  Transmission Date: 20050211
  Serious: Yes (Death, Other)
  Sender: FDA-Public Use
  Company Number: USA030433613

PATIENT
  Age: 96 Year
  Sex: Female
  Weight: 35 kg

DRUGS (4)
  1. FORTEO [Suspect]
     Indication: OSTEOPOROSIS
     Dates: start: 20030326
  2. GARLIC [Concomitant]
  3. MECLIZINE [Concomitant]
  4. MULTI-VITAMINS [Concomitant]

REACTIONS (6)
  - ABASIA [None]
  - FALL [None]
  - JOINT INJURY [None]
  - PAIN [None]
  - PAIN IN EXTREMITY [None]
  - SPINAL DISORDER [None]
